FAERS Safety Report 6565613-X (Version None)
Quarter: 2010Q1

REPORT INFORMATION
  Report Type: 
  Country: None (occurrence: None)
  Receive Date: 20100201
  Receipt Date: 20100128
  Transmission Date: 20100710
  Serious: Yes (Other)
  Sender: FDA-Public Use
  Company Number: AU-RB-001407-10

PATIENT
  Sex: Female

DRUGS (8)
  1. NORSPAN [Suspect]
     Indication: PAIN
     Dosage: 10 MCG  PER HOUR
     Route: 062
     Dates: start: 20081220, end: 20090218
  2. NORSPAN [Suspect]
     Dosage: 5 MCG PER HOUR
     Route: 062
     Dates: start: 20090320
  3. NORSPAN [Suspect]
     Dosage: 20 MCG PER HOUR
     Route: 062
     Dates: start: 20090219, end: 20090319
  4. KARVEA [Concomitant]
     Indication: DRUG USE FOR UNKNOWN INDICATION
     Dosage: DOSING INFORMATION UNKNOWN
     Route: 065
  5. MINIDIAB [Concomitant]
     Indication: DRUG USE FOR UNKNOWN INDICATION
     Dosage: DOSING INFORMATION UNKNOWN
     Route: 065
  6. PLAVIX [Concomitant]
     Indication: DRUG USE FOR UNKNOWN INDICATION
     Dosage: DOSING INFORMATION UNKNOWN
     Route: 065
  7. BICOR [Concomitant]
     Indication: DRUG USE FOR UNKNOWN INDICATION
     Dosage: DOSING INFORMATION UNKNOWN
     Route: 065
  8. CRESTOR [Concomitant]
     Indication: DRUG USE FOR UNKNOWN INDICATION
     Dosage: DOSING INFORMATION UNKNOWN
     Route: 065

REACTIONS (5)
  - COLD SWEAT [None]
  - FLUID RETENTION [None]
  - HALLUCINATION, VISUAL [None]
  - NIGHTMARE [None]
  - WEIGHT INCREASED [None]
